FAERS Safety Report 4989791-9 (Version None)
Quarter: 2006Q2

REPORT INFORMATION
  Report Type: 
  Country: None (occurrence: None)
  Receive Date: 20060428
  Receipt Date: 20060419
  Transmission Date: 20061013
  Serious: Yes (Hospitalization)
  Sender: FDA-Public Use
  Company Number: 2006050593

PATIENT
  Age: 53 Year
  Sex: Female
  Weight: 61 kg

DRUGS (8)
  1. SUTENT [Suspect]
     Indication: RENAL CELL CARCINOMA STAGE UNSPECIFIED
     Dosage: 50 MG (50 MG 1 IN 1 D) ORAL
     Route: 048
     Dates: start: 20060322, end: 20060410
  2. INSULIN [Concomitant]
  3. NEXIUM [Concomitant]
  4. NOCTAMID (LORMETAZEPAM) [Concomitant]
  5. IXEL (MILNACIPRAN) [Concomitant]
  6. BROMAZEPAM (BROMAZEPAM) [Concomitant]
  7. CIRKAN (ASCORBIC ACID, HERBAL EXTRACTS NOS, HESPERIDIN METHYL CHALCONE [Concomitant]
  8. FERROUS SULFATE TAB [Concomitant]

REACTIONS (2)
  - OESOPHAGEAL HAEMORRHAGE [None]
  - OESOPHAGITIS ULCERATIVE [None]
